FAERS Safety Report 5008464-X (Version None)
Quarter: 2006Q2

REPORT INFORMATION
  Report Type: 
  Country: None (occurrence: None)
  Receive Date: 20060522
  Receipt Date: 20060522
  Transmission Date: 20061013
  Serious: No
  Sender: FDA-Public Use
  Company Number: None

PATIENT
  Sex: Female
  Weight: 48 kg

DRUGS (1)
  1. TEQUIN [Suspect]
     Indication: SINUSITIS
     Dosage: TABS 1 DAILY 400MG   ONE TAB DAILY  PO
     Route: 048
     Dates: start: 20040705, end: 20040712

REACTIONS (3)
  - DIABETES MELLITUS INSULIN-DEPENDENT [None]
  - DRY MOUTH [None]
  - VISION BLURRED [None]
